FAERS Safety Report 5371354-7 (Version None)
Quarter: 2007Q2

REPORT INFORMATION
  Report Type: 
  Country: None (occurrence: None)
  Receive Date: 20070622
  Receipt Date: 20070620
  Transmission Date: 20071010
  Serious: Yes (Death)
  Sender: FDA-Public Use
  Company Number: TCI2007A02728

PATIENT
  Age: 85 Year
  Sex: Female

DRUGS (7)
  1. LANSOPRAZOLE [Suspect]
     Indication: GASTRIC ULCER
     Dosage: 60 MG (30 MG, 2 IN 1 D) INTRAVENOUS DRIP
     Route: 041
     Dates: start: 20070602, end: 20070604
  2. FESIN (SACCHARATED IRON OXIDE) (INJECTION) [Concomitant]
  3. NEUROTROPIN (ORGAN LYSATE, STANDARDIZED) (INJECTION) [Concomitant]
  4. BIOGEN (THIAMINE DISULFIDE) (INJECTION) [Concomitant]
  5. CERCINE INJECTION (DIAZEPAM) (INJECTION) [Concomitant]
  6. MAGTECT (ALUMINUM HYDROXIDE/MAGNESIUM HYDROXIDE) (SOLUTION) [Concomitant]
  7. ALLOID G (SODIUM ALGINATE) (PREPARATION FOR ORAL USE (NOS)) [Concomitant]

REACTIONS (3)
  - GASTRIC ULCER HAEMORRHAGE [None]
  - RESPIRATORY ARREST [None]
  - SHOCK [None]
